FAERS Safety Report 9791312 (Version 2)
Quarter: 2014Q1

REPORT INFORMATION
  Report Type: Report from Study
  Country: CN (occurrence: CN)
  Receive Date: 20140101
  Receipt Date: 20140101
  Transmission Date: 20141002
  Serious: Yes (Hospitalization, Other)
  Sender: FDA-Public Use
  Company Number: CN-ROCHE-1260518

PATIENT
  Sex: Female

DRUGS (11)
  1. CELLCEPT [Suspect]
     Indication: SYSTEMIC LUPUS ERYTHEMATOSUS
     Route: 048
  2. CELLCEPT [Suspect]
     Indication: LUPUS NEPHRITIS
     Dosage: 1.5 G PER DAY
     Route: 048
     Dates: start: 2003
  3. CELLCEPT [Suspect]
     Dosage: 0.5G PER DAY
     Route: 048
     Dates: start: 2004, end: 2004
  4. CELLCEPT [Suspect]
     Dosage: 1 G PER DAY
     Route: 048
     Dates: start: 200601
  5. CYCLOPHOSPHAMIDE [Suspect]
     Indication: LUPUS NEPHRITIS
     Route: 041
  6. GAMMA GLOBULIN [Suspect]
     Indication: LUPUS NEPHRITIS
     Route: 041
  7. PREDNISONE [Suspect]
     Indication: LUPUS NEPHRITIS
     Route: 048
     Dates: start: 2003, end: 2006
  8. PREDNISONE [Suspect]
     Route: 048
     Dates: start: 2009
  9. METHYLPREDNISOLONE [Suspect]
     Indication: LUPUS NEPHRITIS
     Route: 041
     Dates: start: 2007, end: 2008
  10. TACROLIMUS [Concomitant]
     Indication: LUPUS NEPHRITIS
     Route: 048
     Dates: start: 2009
  11. TRIPTERYGIUM WILFORDII [Concomitant]
     Indication: LUPUS NEPHRITIS
     Route: 048

REACTIONS (23)
  - Renal failure acute [Recovering/Resolving]
  - Renal tubular disorder [Recovering/Resolving]
  - Fracture [Recovering/Resolving]
  - Disease recurrence [Unknown]
  - Hypertension [Recovered/Resolved]
  - Blood creatinine decreased [Not Recovered/Not Resolved]
  - Blood uric acid increased [Not Recovered/Not Resolved]
  - Lipids increased [Not Recovered/Not Resolved]
  - Menstruation irregular [Unknown]
  - Blood oestrogen decreased [Unknown]
  - Blood creatinine increased [Unknown]
  - Drug hypersensitivity [Unknown]
  - Oedema [Unknown]
  - Nausea [Unknown]
  - Decreased appetite [Unknown]
  - Cystatin C increased [Unknown]
  - Blood immunoglobulin G decreased [Unknown]
  - Double stranded DNA antibody positive [Unknown]
  - Proteinuria [Unknown]
  - B-lymphocyte count decreased [Unknown]
  - Bone pain [Unknown]
  - Hypotension [Unknown]
  - Infection [Unknown]
